FAERS Safety Report 9204236 (Version 1)
Quarter: 2013Q1

REPORT INFORMATION
  Report Type: Spontaneous
  Country: US (occurrence: None)
  Receive Date: 20120709
  Receipt Date: 20120709
  Transmission Date: 20140127
  Serious: No
  Sender: FDA-Public Use
  Company Number: 2012HGS-003465

PATIENT
  Age: 64 Year
  Sex: Female

DRUGS (4)
  1. BENLYSTA [Suspect]
     Dosage: 1 IN 28 D
     Route: 041
     Dates: start: 20120313
  2. MYOFORTIC (MYCOPHENOLATE SODIUM) [Concomitant]
  3. COREG CR (CARVEDILOL (CARVEDILOL) [Concomitant]
  4. HYZAAR (HYZAAR) (HYDROCHLORTHIAZIDE, LOSARTAN POTASSIUM) [Concomitant]

REACTIONS (2)
  - Infusion related reaction [None]
  - Dysgeusia [None]
